FAERS Safety Report 5261018-2 (Version None)
Quarter: 2007Q1

REPORT INFORMATION
  Report Type: 
  Country: None (occurrence: None)
  Receive Date: 20061208
  Receipt Date: 20060508
  Transmission Date: 20070707
  Serious: Yes (Death)
  Sender: FDA-Public Use
  Company Number: USA-2006-0024198

PATIENT
  Age: 20 Year
  Sex: Female
  Weight: 127 kg

DRUGS (5)
  1. OXYCONTIN [Suspect]
     Indication: DRUG USE FOR UNKNOWN INDICATION
  2. PROMETHAZINE [Concomitant]
  3. LEXAPRO [Concomitant]
  4. LUNESTA [Concomitant]
  5. DIAZEPAM [Concomitant]

REACTIONS (1)
  - OVERDOSE [None]
